FAERS Safety Report 4346518-1 (Version None)
Quarter: 2004Q2

REPORT INFORMATION
  Report Type: 
  Country: None (occurrence: None)
  Receive Date: 20040426
  Receipt Date: 20031106
  Transmission Date: 20050107
  Serious: Yes (Other)
  Sender: FDA-Public Use
  Company Number: US-BRISTOL-MYERS SQUIBB COMPANY-12430310

PATIENT
  Age: 58 Year
  Sex: Male
  Weight: 86 kg

DRUGS (11)
  1. CARBOPLATIN [Suspect]
     Indication: LUNG NEOPLASM MALIGNANT
     Dosage: 244 MG ALSO GIVEN FOR CYCLE 8 ON 05-NOV-2003
     Route: 042
     Dates: start: 20031029, end: 20031029
  2. TAXOL [Concomitant]
  3. KYTRIL [Concomitant]
     Indication: PREMEDICATION
  4. DECADRON [Concomitant]
     Indication: PREMEDICATION
  5. BENADRYL [Concomitant]
     Indication: PREMEDICATION
  6. COUMADIN [Concomitant]
  7. NEXIUM [Concomitant]
  8. TOPROL-XL [Concomitant]
  9. AMIODARONE HCL [Concomitant]
  10. ZANTAC [Concomitant]
  11. RADIATION THERAPY [Concomitant]

REACTIONS (5)
  - BRONCHOSPASM [None]
  - DYSPNOEA [None]
  - ERYTHEMA [None]
  - NAUSEA [None]
  - VOMITING [None]
